FAERS Safety Report 8449170-9 (Version None)
Quarter: 2012Q2

REPORT INFORMATION
  Report Type: 
  Country: None (occurrence: None)
  Receive Date: 20120619
  Receipt Date: 20120613
  Transmission Date: 20120825
  Serious: Yes (Death)
  Sender: FDA-Public Use
  Company Number: US-CELGENEUS-163-21880-12051362

PATIENT
  Sex: Male

DRUGS (9)
  1. LIPITOR [Concomitant]
     Dosage: 40 MILLIGRAM
     Route: 065
     Dates: start: 20090101
  2. JANUMET [Concomitant]
     Dosage: 5-500
     Route: 065
     Dates: start: 20090101
  3. HYDROCODONE [Concomitant]
     Route: 065
     Dates: start: 20110101
  4. LISINOPRIL [Concomitant]
     Dosage: 20-25MG
     Route: 065
     Dates: start: 20090101
  5. MORPHINE [Concomitant]
     Route: 065
     Dates: start: 20110101
  6. REVLIMID [Suspect]
  7. REVLIMID [Suspect]
     Indication: MULTIPLE MYELOMA
     Dosage: 10 MILLIGRAM
     Route: 048
     Dates: start: 20120418, end: 20120427
  8. ALBUTEROL [Concomitant]
     Route: 065
     Dates: start: 20090101
  9. CARBAMAZEPINE [Concomitant]
     Route: 065
     Dates: start: 20090101

REACTIONS (3)
  - RASH [None]
  - MYELODYSPLASTIC SYNDROME [None]
  - MULTIPLE MYELOMA [None]
